FAERS Safety Report 23698223 (Version 2)
Quarter: 2024Q3

REPORT INFORMATION
  Report Type: Report from Study
  Country: NL (occurrence: NL)
  Receive Date: 20240402
  Receipt Date: 20240709
  Transmission Date: 20241016
  Serious: Yes (Hospitalization, Other)
  Sender: JOHNSON AND JOHNSON
  Company Number: NL-JNJFOC-20240370246

PATIENT

DRUGS (4)
  1. DARZALEX [Suspect]
     Active Substance: DARATUMUMAB
     Indication: Autoimmune haemolytic anaemia
     Route: 042
  2. IBRUTINIB [Suspect]
     Active Substance: IBRUTINIB
     Indication: Autoimmune haemolytic anaemia
     Route: 065
  3. PREDNISOLONE [Concomitant]
     Active Substance: PREDNISOLONE
  4. SIROLIMUS [Concomitant]
     Active Substance: SIROLIMUS

REACTIONS (8)
  - Pneumonia [Unknown]
  - Bacterial sepsis [Unknown]
  - COVID-19 [Unknown]
  - Febrile neutropenia [Unknown]
  - Anal abscess [Unknown]
  - Infusion related reaction [Unknown]
  - Varicella zoster virus infection [Unknown]
  - Off label use [Unknown]
